FAERS Safety Report 5346281-1 (Version None)
Quarter: 2007Q2

REPORT INFORMATION
  Report Type: 
  Country: None (occurrence: None)
  Receive Date: 20070430
  Receipt Date: 20070112
  Transmission Date: 20071010
  Serious: No
  Sender: FDA-Public Use
  Company Number: 259974

PATIENT
  Age: 70 Year
  Sex: Male

DRUGS (1)
  1. LEVEMIR [Suspect]
     Indication: ACCIDENTAL NEEDLE STICK
     Dates: start: 20070112, end: 20070112

REACTIONS (1)
  - ACCIDENTAL NEEDLE STICK [None]
